FAERS Safety Report 7724537-2 (Version None)
Quarter: 2011Q3

REPORT INFORMATION
  Report Type: 
  Country: None (occurrence: None)
  Receive Date: 20110901
  Receipt Date: 20110830
  Transmission Date: 20111222
  Serious: Yes (Hospitalization, Disabling)
  Sender: FDA-Public Use
  Company Number: US-MERCK-1105USA03912

PATIENT
  Age: 74 Year
  Sex: Female
  Weight: 64 kg

DRUGS (4)
  1. FOSAMAX [Suspect]
     Indication: OSTEOPOROSIS
     Route: 048
     Dates: start: 19980522, end: 19990801
  2. FOSAMAX [Suspect]
     Route: 048
     Dates: start: 19990820, end: 20010101
  3. ALENDRONATE SODIUM [Suspect]
     Route: 048
     Dates: start: 20080228, end: 20100317
  4. FOSAMAX [Suspect]
     Route: 048
     Dates: start: 20010314, end: 20100601

REACTIONS (27)
  - LOOSE TOOTH [None]
  - OSTEOMYELITIS [None]
  - FACE OEDEMA [None]
  - SENSITIVITY OF TEETH [None]
  - ORAL INFECTION [None]
  - INTERVERTEBRAL DISC PROTRUSION [None]
  - BLOOD CHOLESTEROL INCREASED [None]
  - BONE LOSS [None]
  - CATARACT [None]
  - SKIN LESION [None]
  - ABSCESS [None]
  - OSTEONECROSIS OF JAW [None]
  - ANAEMIA [None]
  - FALL [None]
  - JAW CYST [None]
  - IMPAIRED HEALING [None]
  - JAW DISORDER [None]
  - DIABETES MELLITUS [None]
  - HAND FRACTURE [None]
  - HYPERTENSION [None]
  - SPINAL OSTEOARTHRITIS [None]
  - TOOTH INFECTION [None]
  - EXOSTOSIS [None]
  - BONE LESION [None]
  - TOOTH DISORDER [None]
  - FISTULA DISCHARGE [None]
  - ANXIETY [None]
